FAERS Safety Report 4845457-7 (Version None)
Quarter: 2005Q4

REPORT INFORMATION
  Report Type: 
  Country: None (occurrence: None)
  Receive Date: 20051125
  Receipt Date: 20051115
  Transmission Date: 20060501
  Serious: Yes (Hospitalization)
  Sender: FDA-Public Use
  Company Number: 2005158176

PATIENT
  Age: 64 Year
  Sex: Male

DRUGS (2)
  1. CAMPTOSAR [Suspect]
     Indication: PANCREATIC CARCINOMA
     Dosage: 170 MG, INTRAVENOUS
     Route: 042
     Dates: start: 20050901, end: 20051027
  2. GEMZAR [Suspect]
     Indication: PANCREATIC CARCINOMA
     Dosage: 1700 MG INTRAVENOUS
     Route: 042
     Dates: start: 20050901, end: 20051027

REACTIONS (1)
  - INTERSTITIAL LUNG DISEASE [None]
